FAERS Safety Report 13002572 (Version 1)
Quarter: 2016Q4

REPORT INFORMATION
  Report Type: Spontaneous
  Country: JP (occurrence: JP)
  Receive Date: 20161206
  Receipt Date: 20161206
  Transmission Date: 20170207
  Serious: Yes (Hospitalization)
  Sender: FDA-Public Use
  Company Number: JP-B.I. PHARMACEUTICALS,INC./RIDGEFIELD-2016-NB-001130

PATIENT
  Age: 87 Year
  Sex: Male

DRUGS (3)
  1. SPIRIVA [Suspect]
     Active Substance: TIOTROPIUM BROMIDE MONOHYDRATE
     Indication: EMPHYSEMA
     Route: 065
  2. SYMBICORT [Concomitant]
     Active Substance: BUDESONIDE\FORMOTEROL FUMARATE DIHYDRATE
     Indication: PRODUCT USED FOR UNKNOWN INDICATION
     Route: 065
  3. LOXONIN [Concomitant]
     Active Substance: LOXOPROFEN SODIUM
     Indication: GOUT
     Route: 048

REACTIONS (15)
  - Pollakiuria [Unknown]
  - Palpitations [Unknown]
  - Arrhythmia [Unknown]
  - Bladder cancer [Unknown]
  - Tremor [Unknown]
  - Scab [Unknown]
  - Thirst [Unknown]
  - Stomatitis [Unknown]
  - Dysphonia [Unknown]
  - Hyperuricaemia [Unknown]
  - Pruritus [Unknown]
  - Vision blurred [Unknown]
  - Hypersensitivity [Unknown]
  - Glossitis [Unknown]
  - Vasculitis [Unknown]
